FAERS Safety Report 4650705-2 (Version None)
Quarter: 2005Q2

REPORT INFORMATION
  Report Type: 
  Country: None (occurrence: None)
  Receive Date: 20050429
  Receipt Date: 20050422
  Transmission Date: 20051028
  Serious: Yes (Hospitalization)
  Sender: FDA-Public Use
  Company Number: 2005US-00519

PATIENT
  Age: 51 Year
  Sex: Female

DRUGS (4)
  1. IBUPROFEN [Suspect]
     Indication: INFLUENZA LIKE ILLNESS
  2. BISOPROLOL FUMARATE [Concomitant]
  3. HYDROCHLOROTHIAZIDE [Concomitant]
  4. LEVOTHYROXINE SODIUM [Concomitant]

REACTIONS (10)
  - ABDOMINAL PAIN UPPER [None]
  - ASTHENIA [None]
  - BILE DUCT NECROSIS [None]
  - BILIARY TRACT DISORDER [None]
  - CHOLANGITIS [None]
  - CHOLANGITIS ACUTE [None]
  - LYMPHOCYTIC INFILTRATION [None]
  - NAUSEA [None]
  - OEDEMA [None]
  - PRURITUS [None]
